FAERS Safety Report 17761127 (Version 1)
Quarter: 2020Q2

REPORT INFORMATION
  Report Type: Spontaneous
  Country: NL (occurrence: NL)
  Receive Date: 20200508
  Receipt Date: 20200508
  Transmission Date: 20200714
  Serious: Yes (Life-Threatening)
  Sender: FDA-Public Use
  Company Number: NL-TEVA-2020-NL-1231297

PATIENT
  Sex: Female
  Weight: 92 kg

DRUGS (4)
  1. SIMVASTATINE [Concomitant]
     Active Substance: SIMVASTATIN
     Dosage: 40 MG (MILLIGRAM), THERAPY START DATE AND END DATE: ASKED BUT UNKNOWN
  2. METOPROLOL. [Concomitant]
     Active Substance: METOPROLOL
     Dosage: THERAPY START DATE AND END DATE: ASKED BUT UNKNOWN
  3. NITROFURANTOINE [Suspect]
     Active Substance: NITROFURANTOIN
     Indication: URINARY TRACT INFECTION
     Dosage: 4DD1
     Dates: start: 20200404, end: 20200404
  4. HYDROCHLOORTHIAZIDE [Concomitant]
     Active Substance: HYDROCHLOROTHIAZIDE
     Dosage: 12. 5 MG (MILLIGRAM), THERAPY START DATE AND END DATE: ASKED BUT UNKNOWN

REACTIONS (1)
  - Anaphylactic shock [Recovered/Resolved]
